FAERS Safety Report 7371913-6 (Version None)
Quarter: 2011Q1

REPORT INFORMATION
  Report Type: 
  Country: None (occurrence: None)
  Receive Date: 20110324
  Receipt Date: 20110317
  Transmission Date: 20110831
  Serious: Yes (Other)
  Sender: FDA-Public Use
  Company Number: US-SANOFI-AVENTIS-2010SA078355

PATIENT
  Age: 65 Year
  Sex: Female

DRUGS (11)
  1. ASPIRIN [Concomitant]
     Dosage: 1/2 A TABLET OF 325 MG
     Route: 048
     Dates: start: 20110101
  2. MULTAQ [Suspect]
     Indication: ATRIAL FIBRILLATION
     Route: 048
     Dates: start: 20101222
  3. MULTAQ [Suspect]
     Route: 048
     Dates: start: 20101222
  4. MULTAQ [Suspect]
     Route: 048
     Dates: start: 20101222
  5. ASPIRIN [Concomitant]
     Route: 048
  6. ALPRAZOLAM [Concomitant]
  7. ALPRAZOLAM [Concomitant]
     Indication: ANXIETY
  8. ALPRAZOLAM [Concomitant]
  9. ATORVASTATIN CALCIUM [Concomitant]
  10. ACTONEL [Concomitant]
     Dosage: TOOK FOR 2 TO 3 YRS
     Route: 065
     Dates: end: 20110101
  11. ROSUVASTATIN CALCIUM [Concomitant]
     Dates: start: 20110101

REACTIONS (12)
  - CIRCADIAN RHYTHM SLEEP DISORDER [None]
  - RASH ERYTHEMATOUS [None]
  - HEART RATE INCREASED [None]
  - DEPRESSION [None]
  - BLOOD GLUCOSE INCREASED [None]
  - HYPERHIDROSIS [None]
  - ATRIAL FIBRILLATION [None]
  - TENSION HEADACHE [None]
  - SKIN EXFOLIATION [None]
  - HOT FLUSH [None]
  - FEELING COLD [None]
  - NERVOUSNESS [None]
